FAERS Safety Report 4884512-2 (Version None)
Quarter: 2006Q1

REPORT INFORMATION
  Report Type: 
  Country: None (occurrence: None)
  Receive Date: 20060119
  Receipt Date: 20050915
  Transmission Date: 20060701
  Serious: Yes (Hospitalization)
  Sender: FDA-Public Use
  Company Number: 2005AP05338

PATIENT
  Age: 18107 Day
  Sex: Female
  Weight: 53 kg

DRUGS (8)
  1. IRESSA [Suspect]
     Indication: NON-SMALL CELL LUNG CANCER
     Route: 048
     Dates: start: 20050811, end: 20050813
  2. IRESSA [Suspect]
     Indication: LUNG ADENOCARCINOMA
     Route: 048
     Dates: start: 20050811, end: 20050813
  3. IRESSA [Suspect]
     Route: 048
     Dates: start: 20050825, end: 20051025
  4. IRESSA [Suspect]
     Route: 048
     Dates: start: 20050825, end: 20051025
  5. RADIOTHERAPY [Concomitant]
     Dosage: 59.4 GY TO THE CHEST
     Dates: start: 20041215, end: 20050207
  6. CISPLATIN [Concomitant]
     Dates: start: 20041012
  7. GEMCITABINE [Concomitant]
     Dates: start: 20041012
  8. IRESSA [Concomitant]

REACTIONS (2)
  - APPENDICITIS [None]
  - CHROMATURIA [None]
